FAERS Safety Report 9331287 (Version 2)
Quarter: 2013Q3

REPORT INFORMATION
  Report Type: Spontaneous
  Country: TW (occurrence: None)
  Receive Date: 20130531
  Receipt Date: 20130806
  Transmission Date: 20140515
  Serious: Yes (Hospitalization)
  Sender: FDA-Public Use
  Company Number: METF20130007

PATIENT
  Age: 61 Year
  Sex: Male

DRUGS (2)
  1. METFORMIN HYDROCHLORIDE EXTENDED RELEASE [Suspect]
     Indication: SUICIDE ATTEMPT
     Route: 048
  2. METFORMIN HYDROCHLORIDE EXTENDED RELEASE [Suspect]
     Indication: TYPE 2 DIABETES MELLITUS
     Route: 048

REACTIONS (8)
  - Suicide attempt [None]
  - Altered state of consciousness [None]
  - Hypotension [None]
  - Renal failure acute [None]
  - Lactic acidosis [None]
  - Shock [None]
  - Haemofiltration [None]
  - Toxicity to various agents [None]
